FAERS Safety Report 8953101 (Version 2)
Quarter: 2013Q2

REPORT INFORMATION
  Report Type: Spontaneous
  Country: US (occurrence: US)
  Receive Date: 20121205
  Receipt Date: 20130419
  Transmission Date: 20140414
  Serious: Yes (Hospitalization)
  Sender: FDA-Public Use
  Company Number: US-PFIZER INC-2012303247

PATIENT
  Sex: Female

DRUGS (2)
  1. NORVASC [Suspect]
     Dosage: 5 MG, UNK
  2. ACCUPRIL [Suspect]
     Dosage: 40 MG, UNK

REACTIONS (3)
  - Pneumonia [Unknown]
  - Influenza [Unknown]
  - Cough [Unknown]
